FAERS Safety Report 9433913 (Version 1)
Quarter: 2013Q3

REPORT INFORMATION
  Report Type: Spontaneous
  Country: DK (occurrence: DK)
  Receive Date: 20130801
  Receipt Date: 20130801
  Transmission Date: 20140515
  Serious: Yes (Hospitalization)
  Sender: FDA-Public Use
  Company Number: DK-ROCHE-1255457

PATIENT
  Age: 66 Year
  Sex: Female

DRUGS (1)
  1. BONDRONAT [Suspect]
     Indication: METASTASES TO BONE
     Route: 048
     Dates: start: 201110, end: 201302

REACTIONS (2)
  - Osteonecrosis of jaw [Not Recovered/Not Resolved]
  - Sequestrectomy [Recovered/Resolved]
